FAERS Safety Report 20719217 (Version 2)
Quarter: 2022Q2

REPORT INFORMATION
  Report Type: Spontaneous
  Country: CA (occurrence: None)
  Receive Date: 20220418
  Receipt Date: 20220423
  Transmission Date: 20220721
  Serious: Yes (Other)
  Sender: FDA-Public Use
  Company Number: CA-ROCHE-3073662

PATIENT
  Age: 62 Year
  Sex: Female

DRUGS (1)
  1. RITUXIMAB [Suspect]
     Active Substance: RITUXIMAB
     Indication: Granulomatosis with polyangiitis
     Route: 042

REACTIONS (7)
  - Hypersensitivity [Recovered/Resolved]
  - Intentional product use issue [Unknown]
  - Nasal congestion [Recovered/Resolved]
  - Off label use [Unknown]
  - Product use issue [Unknown]
  - Pruritus [Recovered/Resolved]
  - Throat clearing [Recovered/Resolved]
